FAERS Safety Report 12665784 (Version 15)
Quarter: 2018Q1

REPORT INFORMATION
  Report Type: Spontaneous
  Country: US (occurrence: US)
  Receive Date: 20160818
  Receipt Date: 20180228
  Transmission Date: 20180508
  Serious: Yes (Congenital Anomaly, Other)
  Sender: FDA-Public Use
  Company Number: PHEH2016US020783

PATIENT
  Sex: Female

DRUGS (1)
  1. ZOFRAN [Suspect]
     Active Substance: ONDANSETRON HYDROCHLORIDE
     Indication: FOETAL EXPOSURE DURING PREGNANCY
     Dosage: MOTHER DOSE: 08 MG
     Route: 064

REACTIONS (58)
  - Congenital ureteric anomaly [Unknown]
  - Heart disease congenital [Unknown]
  - Foetal growth restriction [Unknown]
  - Otitis media chronic [Unknown]
  - Cardiac murmur [Unknown]
  - Obstructive airways disorder [Unknown]
  - Language disorder [Unknown]
  - Urticaria [Unknown]
  - Vaginal infection [Unknown]
  - Single umbilical artery [Unknown]
  - Congenital anomaly [Unknown]
  - Mayer-Rokitansky-Kuster-Hauser syndrome [Unknown]
  - Upper respiratory tract infection [Unknown]
  - Headache [Unknown]
  - Atrial septal defect [Unknown]
  - Left-to-right cardiac shunt [Unknown]
  - Multiple congenital abnormalities [Unknown]
  - Rib hypoplasia [Unknown]
  - Gastroenteritis viral [Unknown]
  - Bronchitis [Unknown]
  - Rhinitis [Unknown]
  - Urinary tract infection [Unknown]
  - Skin papilloma [Unknown]
  - Renal aplasia [Unknown]
  - Foetal exposure during pregnancy [Unknown]
  - Tethered cord syndrome [Unknown]
  - Attention deficit/hyperactivity disorder [Unknown]
  - Cerumen impaction [Unknown]
  - Oropharyngeal pain [Unknown]
  - Poor feeding infant [Unknown]
  - Acute sinusitis [Unknown]
  - Gastrooesophageal reflux disease [Unknown]
  - Encephalopathy [Unknown]
  - Scarlet fever [Unknown]
  - Single functional kidney [Unknown]
  - Adenoiditis [Unknown]
  - Small for dates baby [Unknown]
  - Premature baby [Unknown]
  - Otitis media acute [Unknown]
  - Poor weight gain neonatal [Unknown]
  - Pneumonia [Unknown]
  - Upper limb fracture [Unknown]
  - Developmental delay [Unknown]
  - Ear pain [Unknown]
  - Pharyngitis [Unknown]
  - Decreased appetite [Unknown]
  - Depression [Unknown]
  - Constipation [Unknown]
  - Scoliosis [Unknown]
  - VACTERL syndrome [Unknown]
  - Ventricular septal defect [Unknown]
  - Deafness [Unknown]
  - Ectopic ureter [Unknown]
  - Eustachian tube dysfunction [Unknown]
  - Dysuria [Unknown]
  - Urinary incontinence [Unknown]
  - Enuresis [Unknown]
  - Dermatitis diaper [Unknown]
